FAERS Safety Report 5721564-1 (Version None)
Quarter: 2008Q2

REPORT INFORMATION
  Report Type: 
  Country: None (occurrence: None)
  Receive Date: 20080429
  Receipt Date: 20070323
  Transmission Date: 20081010
  Serious: No
  Sender: FDA-Public Use
  Company Number: US-ASTRAZENECA-2007UW06004

PATIENT
  Age: 65 Year
  Sex: Female
  Weight: 40.8 kg

DRUGS (2)
  1. NEXIUM [Suspect]
     Indication: GASTRIC ULCER
     Dosage: TOOK 2 PILLS OVER TWO DAYS
     Route: 048
     Dates: start: 20070320
  2. CHOLESTEROL MEDICATION [Concomitant]

REACTIONS (2)
  - DIZZINESS [None]
  - MEMORY IMPAIRMENT [None]
